FAERS Safety Report 6129016-4 (Version None)
Quarter: 2009Q1

REPORT INFORMATION
  Report Type: 
  Country: None (occurrence: None)
  Receive Date: 20090324
  Receipt Date: 20090313
  Transmission Date: 20090719
  Serious: Yes (Hospitalization)
  Sender: FDA-Public Use
  Company Number: PHHY2009FR09582

PATIENT
  Sex: Male

DRUGS (5)
  1. VOLTAREN [Suspect]
     Indication: SCIATICA
     Dosage: 150MG PER DAY
     Route: 065
     Dates: start: 20081115, end: 20081118
  2. COAPROVEL [Interacting]
     Dosage: 300MG PER DAY
  3. TAHOR [Concomitant]
     Dosage: 20MG PER DAY
  4. KARDEGIC [Concomitant]
     Dosage: 160MG PER DAY
  5. DI-ANTALVIC [Concomitant]
     Dosage: UNK
     Dates: start: 20081115

REACTIONS (10)
  - ANURIA [None]
  - ATRIAL FIBRILLATION [None]
  - BLOOD GLUCOSE DECREASED [None]
  - DIALYSIS [None]
  - FLUID INTAKE REDUCED [None]
  - HYPERKALAEMIA [None]
  - HYPOPHAGIA [None]
  - LOSS OF CONSCIOUSNESS [None]
  - RENAL FAILURE ACUTE [None]
  - VOMITING [None]
